FAERS Safety Report 17893848 (Version 2)
Quarter: 2020Q3

REPORT INFORMATION
  Report Type: Spontaneous
  Country: US (occurrence: US)
  Receive Date: 20200615
  Receipt Date: 20200703
  Transmission Date: 20201103
  Serious: No
  Sender: FDA-Public Use
  Company Number: US-ASTRAZENECA-2020SE75705

PATIENT
  Sex: Female

DRUGS (1)
  1. LYNPARZA [Suspect]
     Active Substance: OLAPARIB
     Indication: UTERINE CANCER
     Dosage: UNKNOWN
     Route: 048

REACTIONS (2)
  - Radiation vulvovaginitis [Not Recovered/Not Resolved]
  - Product use in unapproved indication [Unknown]
